FAERS Safety Report 13536079 (Version 1)
Quarter: 2017Q2

REPORT INFORMATION
  Report Type: Spontaneous
  Country: IN (occurrence: IN)
  Receive Date: 20170511
  Receipt Date: 20170511
  Transmission Date: 20170830
  Serious: Yes (Other)
  Sender: FDA-Public Use
  Company Number: IN-MYLANLABS-2017M1028152

PATIENT

DRUGS (3)
  1. BLEOMYCIN [Suspect]
     Active Substance: BLEOMYCIN SULFATE
     Indication: VAGINAL CANCER
     Route: 042
     Dates: end: 2013
  2. CISPLATIN. [Suspect]
     Active Substance: CISPLATIN
     Indication: VAGINAL CANCER
     Route: 042
     Dates: end: 2013
  3. FLUOROURACIL. [Suspect]
     Active Substance: FLUOROURACIL
     Indication: VAGINAL CANCER
     Route: 042
     Dates: end: 2013

REACTIONS (1)
  - Acute myeloid leukaemia [Unknown]
